FAERS Safety Report 15591007 (Version 5)
Quarter: 2020Q1

REPORT INFORMATION
  Report Type: Spontaneous
  Country: CO (occurrence: CO)
  Receive Date: 20181106
  Receipt Date: 20200113
  Transmission Date: 20200409
  Serious: Yes (Other)
  Sender: FDA-Public Use
  Company Number: CO-PFIZER INC-2018446828

PATIENT
  Age: 73 Year
  Sex: Female
  Weight: 56 kg

DRUGS (4)
  1. SUTENT [Suspect]
     Active Substance: SUNITINIB MALATE
     Dosage: 50 MG, EVERY OTHER DAY
     Route: 048
     Dates: start: 201810
  2. SUTENT [Suspect]
     Active Substance: SUNITINIB MALATE
     Indication: CLEAR CELL RENAL CELL CARCINOMA
     Dosage: 50 MG, CYCLIC (TAKEN 2 WEEKS AND REST FOR 2 WEEKS)
     Route: 048
     Dates: start: 201809, end: 2018
  3. SUTENT [Suspect]
     Active Substance: SUNITINIB MALATE
     Dosage: 1 DF, CYCLIC (1 CAPSULE DAILY FOR 2 WEEKS AND RESTS 7 DAYS)
     Dates: start: 201810
  4. LEVOTHYROXINE. [Concomitant]
     Active Substance: LEVOTHYROXINE
     Dosage: UNK
     Dates: start: 2016

REACTIONS (16)
  - Gastrooesophageal reflux disease [Unknown]
  - Flatulence [Recovered/Resolved]
  - Eye oedema [Not Recovered/Not Resolved]
  - Diarrhoea [Recovered/Resolved]
  - Constipation [Recovered/Resolved]
  - Oedema peripheral [Recovered/Resolved]
  - Vomiting [Recovering/Resolving]
  - Blepharitis [Not Recovered/Not Resolved]
  - Haematemesis [Unknown]
  - Epistaxis [Recovered/Resolved]
  - Choking sensation [Recovered/Resolved]
  - Burning sensation [Unknown]
  - Abdominal discomfort [Unknown]
  - Pain in extremity [Recovered/Resolved]
  - Contusion [Not Recovered/Not Resolved]
  - Nausea [Unknown]

NARRATIVE: CASE EVENT DATE: 2018
